FAERS Safety Report 4623487-8 (Version None)
Quarter: 2005Q1

REPORT INFORMATION
  Report Type: 
  Country: None (occurrence: None)
  Receive Date: 20050330
  Receipt Date: 20050318
  Transmission Date: 20050727
  Serious: Yes (Hospitalization)
  Sender: FDA-Public Use
  Company Number: 200510196BFR

PATIENT
  Age: 74 Year
  Sex: Male

DRUGS (4)
  1. CIPROFLOXACIN HCL [Suspect]
     Indication: ARTHRITIS
     Dosage: 1 G, TOTAL DAILY, ORAL
     Route: 048
     Dates: start: 20041215, end: 20041228
  2. FUCIDINE CAP [Suspect]
     Indication: ARTHRITIS
     Dosage: 1.5 G, TOTAL DAILY, ORAL
     Route: 048
     Dates: start: 20041019, end: 20041228
  3. OFLOCET [Concomitant]
  4. PEFLACINE [Concomitant]

REACTIONS (6)
  - CHOLECYSTITIS [None]
  - CYTOLYTIC HEPATITIS [None]
  - HEPATITIS [None]
  - HEPATITIS TOXIC [None]
  - RENAL FAILURE ACUTE [None]
  - RHABDOMYOLYSIS [None]
